FAERS Safety Report 20381925 (Version 15)
Quarter: 2023Q4

REPORT INFORMATION
  Report Type: Spontaneous
  Country: DE (occurrence: DE)
  Receive Date: 20220127
  Receipt Date: 20231116
  Transmission Date: 20240110
  Serious: Yes (Other)
  Sender: FDA-Public Use
  Company Number: DE-VALIDUS PHARMACEUTICALS LLC-DE-VDP-2022-014998

PATIENT

DRUGS (234)
  1. ERGOCALCIFEROL [Suspect]
     Active Substance: ERGOCALCIFEROL
     Indication: Product used for unknown indication
     Dosage: 20000 IU, QWK QW (20,000 I.E)
     Route: 065
  2. ERGOCALCIFEROL [Suspect]
     Active Substance: ERGOCALCIFEROL
     Dosage: 20000 IU, QWK
     Route: 065
  3. ERGOCALCIFEROL [Suspect]
     Active Substance: ERGOCALCIFEROL
     Dosage: 20000 IU, QWK
     Route: 065
  4. AMBROXOL HYDROCHLORIDE [Suspect]
     Active Substance: AMBROXOL HYDROCHLORIDE
     Indication: Product used for unknown indication
     Dosage: UNK
     Route: 055
  5. AMBROXOL HYDROCHLORIDE [Suspect]
     Active Substance: AMBROXOL HYDROCHLORIDE
     Indication: Product used for unknown indication
     Dosage: UNK
     Route: 065
  6. ATROVENT [Suspect]
     Active Substance: IPRATROPIUM BROMIDE
     Indication: Cough
     Dosage: UNK, UNKNOWN FREQ
     Route: 065
     Dates: start: 2018, end: 2018
  7. ATROVENT [Suspect]
     Active Substance: IPRATROPIUM BROMIDE
     Indication: Dyspnoea
     Dosage: UNK, INHALATIONAL
     Route: 050
  8. ATROVENT [Suspect]
     Active Substance: IPRATROPIUM BROMIDE
     Indication: Dysphonia
  9. ATROVENT [Suspect]
     Active Substance: IPRATROPIUM BROMIDE
     Indication: Secretion discharge
  10. ATROVENT [Suspect]
     Active Substance: IPRATROPIUM BROMIDE
     Indication: Nasopharyngitis
  11. ATROVENT [Suspect]
     Active Substance: IPRATROPIUM BROMIDE
     Indication: Pneumothorax
  12. ATROVENT [Suspect]
     Active Substance: IPRATROPIUM BROMIDE
     Indication: Secretion discharge
  13. ATROVENT [Suspect]
     Active Substance: IPRATROPIUM BROMIDE
     Indication: Nasopharyngitis
  14. ATROVENT [Suspect]
     Active Substance: IPRATROPIUM BROMIDE
     Indication: Pneumothorax
  15. ATROVENT [Suspect]
     Active Substance: IPRATROPIUM BROMIDE
     Indication: Nasopharyngitis
  16. ATROVENT [Suspect]
     Active Substance: IPRATROPIUM BROMIDE
     Indication: Pneumothorax
  17. ATROVENT [Suspect]
     Active Substance: IPRATROPIUM BROMIDE
     Indication: Pneumothorax
  18. ATROVENT [Suspect]
     Active Substance: IPRATROPIUM BROMIDE
     Indication: Secretion discharge
  19. ATROVENT [Suspect]
     Active Substance: IPRATROPIUM BROMIDE
     Indication: Chest discomfort
  20. TAMSULOSIN HYDROCHLORIDE [Suspect]
     Active Substance: TAMSULOSIN HYDROCHLORIDE
     Indication: Product used for unknown indication
     Dosage: UNK
     Route: 065
  21. TAMSULOSIN HYDROCHLORIDE [Suspect]
     Active Substance: TAMSULOSIN HYDROCHLORIDE
     Indication: Product used for unknown indication
  22. COLESEVELAM HYDROCHLORIDE [Suspect]
     Active Substance: COLESEVELAM HYDROCHLORIDE
     Indication: Product used for unknown indication
     Dosage: UNK
     Route: 065
  23. ALBUTEROL SULFATE [Suspect]
     Active Substance: ALBUTEROL SULFATE
     Indication: Pneumothorax
     Dosage: UNK, UNKNOWN FREQ
     Route: 065
     Dates: start: 2018, end: 2018
  24. ALBUTEROL SULFATE [Suspect]
     Active Substance: ALBUTEROL SULFATE
     Indication: Dysphonia
     Dosage: UNK
     Route: 055
  25. ALBUTEROL SULFATE [Suspect]
     Active Substance: ALBUTEROL SULFATE
     Indication: Nasopharyngitis
  26. ALBUTEROL SULFATE [Suspect]
     Active Substance: ALBUTEROL SULFATE
     Indication: Dyspnoea
  27. ALBUTEROL SULFATE [Suspect]
     Active Substance: ALBUTEROL SULFATE
     Indication: Cough
  28. ALBUTEROL SULFATE [Suspect]
     Active Substance: ALBUTEROL SULFATE
     Indication: Chest discomfort
  29. ALBUTEROL SULFATE [Suspect]
     Active Substance: ALBUTEROL SULFATE
     Indication: Productive cough
  30. ALBUTEROL SULFATE [Suspect]
     Active Substance: ALBUTEROL SULFATE
     Indication: Secretion discharge
  31. ALBUTEROL SULFATE [Suspect]
     Active Substance: ALBUTEROL SULFATE
     Indication: Pneumothorax
  32. ALBUTEROL SULFATE [Suspect]
     Active Substance: ALBUTEROL SULFATE
     Indication: Nasopharyngitis
  33. ALBUTEROL SULFATE [Suspect]
     Active Substance: ALBUTEROL SULFATE
     Indication: Dyspnoea
  34. FLUTICASONE PROPIONATE\SALMETEROL XINAFOATE [Suspect]
     Active Substance: FLUTICASONE PROPIONATE\SALMETEROL XINAFOATE
     Indication: Dysphonia
     Dosage: UNK, UNKNOWN FREQ
     Route: 055
     Dates: start: 2018, end: 2018
  35. FLUTICASONE PROPIONATE\SALMETEROL XINAFOATE [Suspect]
     Active Substance: FLUTICASONE PROPIONATE\SALMETEROL XINAFOATE
     Indication: Nasopharyngitis
  36. FLUTICASONE PROPIONATE\SALMETEROL XINAFOATE [Suspect]
     Active Substance: FLUTICASONE PROPIONATE\SALMETEROL XINAFOATE
     Indication: Dyspnoea
  37. FLUTICASONE PROPIONATE\SALMETEROL XINAFOATE [Suspect]
     Active Substance: FLUTICASONE PROPIONATE\SALMETEROL XINAFOATE
     Indication: Cough
  38. FLUTICASONE PROPIONATE\SALMETEROL XINAFOATE [Suspect]
     Active Substance: FLUTICASONE PROPIONATE\SALMETEROL XINAFOATE
     Indication: Pneumothorax
  39. FLUTICASONE PROPIONATE\SALMETEROL XINAFOATE [Suspect]
     Active Substance: FLUTICASONE PROPIONATE\SALMETEROL XINAFOATE
     Indication: Secretion discharge
  40. FLUTICASONE PROPIONATE\SALMETEROL XINAFOATE [Suspect]
     Active Substance: FLUTICASONE PROPIONATE\SALMETEROL XINAFOATE
     Indication: Pneumothorax
  41. FLUTICASONE PROPIONATE\SALMETEROL XINAFOATE [Suspect]
     Active Substance: FLUTICASONE PROPIONATE\SALMETEROL XINAFOATE
     Indication: Secretion discharge
  42. TOCOPHEROL [Suspect]
     Active Substance: TOCOPHEROL
     Indication: Product used for unknown indication
     Dosage: UNK
     Route: 065
  43. TOCOPHEROL [Suspect]
     Active Substance: TOCOPHEROL
     Dosage: 20000 UNK, QWK
     Route: 065
  44. TOCOPHEROL [Suspect]
     Active Substance: TOCOPHEROL
     Dosage: 2000 INTERNATIONAL UNIT, QWK
     Route: 065
  45. TOCOPHEROL [Suspect]
     Active Substance: TOCOPHEROL
     Dosage: UNK, Q2WK
     Route: 065
  46. TOCOPHEROL [Suspect]
     Active Substance: TOCOPHEROL
     Dosage: UNK, QWK
     Route: 065
  47. TOCOPHEROL [Suspect]
     Active Substance: TOCOPHEROL
     Dosage: 20000 UNK, QWK
     Route: 065
  48. TOCOPHEROL [Suspect]
     Active Substance: TOCOPHEROL
     Dosage: 20000 IU, QWK
     Route: 065
  49. TOCOPHEROL [Suspect]
     Active Substance: TOCOPHEROL
     Dosage: 2000 IU, QWK
     Route: 065
  50. ASPIRIN [Suspect]
     Active Substance: ASPIRIN
     Indication: Product used for unknown indication
     Dosage: 100 MG
     Route: 065
  51. ASPIRIN [Suspect]
     Active Substance: ASPIRIN
     Dosage: UNK, BID
     Route: 065
  52. OLMESARTAN MEDOXOMIL [Suspect]
     Active Substance: OLMESARTAN MEDOXOMIL
     Indication: Product used for unknown indication
     Dosage: UNK
     Route: 065
  53. RIVAROXABAN [Suspect]
     Active Substance: RIVAROXABAN
     Indication: Product used for unknown indication
     Dosage: UNK
     Route: 065
  54. RIVAROXABAN [Suspect]
     Active Substance: RIVAROXABAN
     Dosage: UNK
     Route: 065
  55. RIVAROXABAN [Suspect]
     Active Substance: RIVAROXABAN
     Dosage: UNK. UNKNOWN FREQ
     Route: 065
  56. RIVAROXABAN [Suspect]
     Active Substance: RIVAROXABAN
     Dosage: UNK. UNKNOWN FREQ
     Route: 065
  57. RIVAROXABAN [Suspect]
     Active Substance: RIVAROXABAN
     Dosage: UNK. UNKNOWN FREQ
     Route: 065
  58. RIVAROXABAN [Suspect]
     Active Substance: RIVAROXABAN
     Dosage: UNK. UNKNOWN FREQ
     Route: 065
  59. BISOPROLOL [Suspect]
     Active Substance: BISOPROLOL\BISOPROLOL FUMARATE
     Indication: Product used for unknown indication
     Dosage: 1 DF, QD, (1-0-0)
     Route: 065
     Dates: start: 20201210
  60. DICLOFENAC DIETHYLAMINE [Suspect]
     Active Substance: DICLOFENAC DIETHYLAMINE
     Indication: Product used for unknown indication
     Dosage: UNK
     Route: 065
  61. IPRATROPIUM BROMIDE [Suspect]
     Active Substance: IPRATROPIUM BROMIDE\IPRATROPIUM BROMIDE ANHYDROUS
     Indication: Product used for unknown indication
     Dosage: UNK
     Route: 055
  62. IPRATROPIUM BROMIDE [Suspect]
     Active Substance: IPRATROPIUM BROMIDE\IPRATROPIUM BROMIDE ANHYDROUS
     Indication: Chest discomfort
     Dosage: UNK,UNK, UNKNOWN FREQ
     Route: 055
     Dates: start: 2018, end: 2018
  63. IPRATROPIUM BROMIDE [Suspect]
     Active Substance: IPRATROPIUM BROMIDE\IPRATROPIUM BROMIDE ANHYDROUS
     Indication: Pneumothorax
  64. IPRATROPIUM BROMIDE [Suspect]
     Active Substance: IPRATROPIUM BROMIDE\IPRATROPIUM BROMIDE ANHYDROUS
     Indication: Secretion discharge
  65. IPRATROPIUM BROMIDE [Suspect]
     Active Substance: IPRATROPIUM BROMIDE\IPRATROPIUM BROMIDE ANHYDROUS
     Indication: Secretion discharge
  66. IPRATROPIUM BROMIDE [Suspect]
     Active Substance: IPRATROPIUM BROMIDE\IPRATROPIUM BROMIDE ANHYDROUS
     Indication: Nasopharyngitis
  67. IPRATROPIUM BROMIDE [Suspect]
     Active Substance: IPRATROPIUM BROMIDE\IPRATROPIUM BROMIDE ANHYDROUS
     Indication: Pneumothorax
  68. IPRATROPIUM BROMIDE [Suspect]
     Active Substance: IPRATROPIUM BROMIDE\IPRATROPIUM BROMIDE ANHYDROUS
     Indication: Nasopharyngitis
  69. IPRATROPIUM BROMIDE [Suspect]
     Active Substance: IPRATROPIUM BROMIDE\IPRATROPIUM BROMIDE ANHYDROUS
     Indication: Secretion discharge
  70. IPRATROPIUM BROMIDE [Suspect]
     Active Substance: IPRATROPIUM BROMIDE\IPRATROPIUM BROMIDE ANHYDROUS
     Indication: Cough
  71. IPRATROPIUM BROMIDE [Suspect]
     Active Substance: IPRATROPIUM BROMIDE\IPRATROPIUM BROMIDE ANHYDROUS
     Indication: Dyspnoea
  72. IPRATROPIUM BROMIDE [Suspect]
     Active Substance: IPRATROPIUM BROMIDE\IPRATROPIUM BROMIDE ANHYDROUS
     Indication: Dysphonia
  73. IPRATROPIUM BROMIDE [Suspect]
     Active Substance: IPRATROPIUM BROMIDE\IPRATROPIUM BROMIDE ANHYDROUS
     Indication: Nasopharyngitis
  74. IPRATROPIUM BROMIDE [Suspect]
     Active Substance: IPRATROPIUM BROMIDE\IPRATROPIUM BROMIDE ANHYDROUS
     Indication: Pneumothorax
  75. IPRATROPIUM BROMIDE [Suspect]
     Active Substance: IPRATROPIUM BROMIDE\IPRATROPIUM BROMIDE ANHYDROUS
     Indication: Pneumothorax
  76. CALCIUM CARBONATE [Suspect]
     Active Substance: CALCIUM CARBONATE
     Indication: Product used for unknown indication
     Dosage: UNK
     Route: 065
  77. IBUPROFEN [Suspect]
     Active Substance: IBUPROFEN
     Indication: Product used for unknown indication
     Dosage: UNK, PRN
     Route: 065
  78. ROSUVASTATIN CALCIUM [Suspect]
     Active Substance: ROSUVASTATIN CALCIUM
     Indication: Product used for unknown indication
     Dosage: UNK, UNKNOWN FREQ
     Route: 065
  79. BIOTIN [Suspect]
     Active Substance: BIOTIN
     Indication: Product used for unknown indication
     Dosage: UNK, QD (1-0-0)
     Route: 065
  80. BIOTIN [Suspect]
     Active Substance: BIOTIN
     Dosage: UNK,  UNKNOWN FREQ, QD
     Route: 065
  81. BIOTIN [Suspect]
     Active Substance: BIOTIN
     Dosage: UNK,  UNKNOWN FREQ, QD
     Route: 065
  82. PRALUENT [Suspect]
     Active Substance: ALIROCUMAB
     Indication: Product used for unknown indication
     Dosage: UNK, UNKNOWN FREQ (STRENGTH 75)
     Route: 065
  83. CLOPIDOGREL BISULFATE [Suspect]
     Active Substance: CLOPIDOGREL BISULFATE
     Indication: Product used for unknown indication
     Dosage: UNK
     Route: 065
     Dates: start: 20201210
  84. CLOPIDOGREL BISULFATE [Suspect]
     Active Substance: CLOPIDOGREL BISULFATE
     Dosage: UNK
     Route: 065
  85. MOMETASONE FUROATE [Suspect]
     Active Substance: MOMETASONE FUROATE
     Indication: Product used for unknown indication
     Dosage: UNK, UNK, 2 PUFFS BID
     Route: 065
  86. MOMETASONE FUROATE [Suspect]
     Active Substance: MOMETASONE FUROATE
     Indication: Product used for unknown indication
     Dosage: UNK UNK, PRN,  2 PUFFS
     Route: 065
  87. MOMETASONE FUROATE [Suspect]
     Active Substance: MOMETASONE FUROATE
     Dosage: 2 PUFFS, BID (1-0-1)
     Route: 065
  88. CALCIUM [Suspect]
     Active Substance: CALCIUM
     Indication: Product used for unknown indication
     Dosage: UNK, UNKNOWN FREQ
     Route: 065
  89. CALCIUM PANTOTHENATE [Suspect]
     Active Substance: CALCIUM PANTOTHENATE
     Indication: Product used for unknown indication
     Dosage: UNK, Q8H
     Route: 065
  90. AMBROXOL HYDROCHLORIDE [Concomitant]
     Active Substance: AMBROXOL HYDROCHLORIDE
     Indication: Product used for unknown indication
     Dosage: UNK
     Route: 065
  91. AMBROXOL HYDROCHLORIDE [Concomitant]
     Active Substance: AMBROXOL HYDROCHLORIDE
     Dosage: UNK
     Route: 055
  92. CRESTOR [Suspect]
     Active Substance: ROSUVASTATIN CALCIUM
     Indication: Product used for unknown indication
     Dosage: UNK
     Route: 065
  93. CRESTOR [Suspect]
     Active Substance: ROSUVASTATIN CALCIUM
     Dosage: UNK, UNKNOWN FREQ
     Route: 065
  94. MOMETASONE [Concomitant]
     Active Substance: MOMETASONE
     Indication: Product used for unknown indication
     Dosage: UNK
     Route: 065
  95. DIETARY SUPPLEMENT [Suspect]
     Active Substance: DIETARY SUPPLEMENT
     Indication: Product used for unknown indication
     Dosage: UNK
     Route: 065
  96. SOAP [Suspect]
     Active Substance: SOAP
     Indication: Product used for unknown indication
     Dosage: UNK
     Route: 065
  97. SOAP [Suspect]
     Active Substance: SOAP
     Indication: Product used for unknown indication
     Dosage: UNK
     Route: 065
  98. SOAP [Suspect]
     Active Substance: SOAP
     Indication: Bronchitis
     Dosage: UNK
     Route: 065
  99. SOAP [Suspect]
     Active Substance: SOAP
     Indication: Asthma
     Dosage: UNK
     Route: 065
  100. SOAP [Suspect]
     Active Substance: SOAP
     Indication: Dyspnoea
     Dosage: UNK, UNKNOWN FREQ.(CUTANEOUS EMULSION)
     Route: 065
  101. SOAP [Suspect]
     Active Substance: SOAP
     Indication: Dysphonia
     Dosage: UNK, TID
     Route: 065
  102. SOAP [Suspect]
     Active Substance: SOAP
     Indication: Secretion discharge
     Dosage: UNK, QD
     Route: 065
  103. SOAP [Suspect]
     Active Substance: SOAP
     Indication: Pneumothorax
     Dosage: UNK, Q3WK
     Route: 065
  104. SOAP [Suspect]
     Active Substance: SOAP
     Indication: Nasopharyngitis
     Dosage: UNK, UNKNOWN FREQ
     Route: 065
  105. SOAP [Suspect]
     Active Substance: SOAP
     Indication: Cough
     Dosage: 10 DROP, QD (10 GTT DROPS)
     Route: 065
  106. SOAP [Suspect]
     Active Substance: SOAP
     Dosage: UNK, Q3WK
     Route: 065
  107. SOAP [Suspect]
     Active Substance: SOAP
     Dosage: UNK, TID
     Route: 065
  108. SOAP [Suspect]
     Active Substance: SOAP
     Dosage: UNK, UNKNOWN FREQ
     Route: 065
  109. SOAP [Suspect]
     Active Substance: SOAP
     Dosage: UNK, QD
     Route: 065
  110. SOAP [Suspect]
     Active Substance: SOAP
     Dosage: UNK, Q3WK
     Route: 065
  111. SOAP [Suspect]
     Active Substance: SOAP
     Dosage: UNK, UNKNOWN FREQ
     Route: 065
  112. SOAP [Suspect]
     Active Substance: SOAP
     Dosage: 10 DROP, QD (10 GTT DROPS)
     Route: 065
  113. SOAP [Suspect]
     Active Substance: SOAP
     Dosage: UNK, Q3WK
     Route: 065
  114. SOAP [Suspect]
     Active Substance: SOAP
     Dosage: UNK, UNKNOWN FREQ
     Route: 065
  115. CALCIUM CARBONATE [Suspect]
     Active Substance: CALCIUM CARBONATE
     Indication: Product used for unknown indication
     Dosage: UNK
     Route: 065
  116. FLUTICASONE PROPIONATE\SALMETEROL XINAFOATE [Suspect]
     Active Substance: FLUTICASONE PROPIONATE\SALMETEROL XINAFOATE
     Indication: Dysphonia
     Dosage: UNK
     Route: 065
  117. FLUTICASONE PROPIONATE\SALMETEROL XINAFOATE [Suspect]
     Active Substance: FLUTICASONE PROPIONATE\SALMETEROL XINAFOATE
     Indication: Nasopharyngitis
     Dosage: UNK, UNK, UNKNOWN FREQ, INHALED VIA SPACER WITH  PAEDIATRIC MASK
     Route: 065
     Dates: start: 2018, end: 2018
  118. FLUTICASONE PROPIONATE\SALMETEROL XINAFOATE [Suspect]
     Active Substance: FLUTICASONE PROPIONATE\SALMETEROL XINAFOATE
     Indication: Dyspnoea
  119. FLUTICASONE PROPIONATE\SALMETEROL XINAFOATE [Suspect]
     Active Substance: FLUTICASONE PROPIONATE\SALMETEROL XINAFOATE
     Indication: Cough
  120. FLUTICASONE PROPIONATE\SALMETEROL XINAFOATE [Suspect]
     Active Substance: FLUTICASONE PROPIONATE\SALMETEROL XINAFOATE
     Indication: Pneumothorax
  121. FLUTICASONE PROPIONATE\SALMETEROL XINAFOATE [Suspect]
     Active Substance: FLUTICASONE PROPIONATE\SALMETEROL XINAFOATE
     Indication: Secretion discharge
  122. FLUTICASONE PROPIONATE\SALMETEROL XINAFOATE [Suspect]
     Active Substance: FLUTICASONE PROPIONATE\SALMETEROL XINAFOATE
     Indication: Dysphonia
  123. MAGNESIUM OROTATE [Suspect]
     Active Substance: MAGNESIUM OROTATE
     Indication: Product used for unknown indication
     Dosage: UNK
     Route: 065
  124. MAGNESIUM OROTATE [Suspect]
     Active Substance: MAGNESIUM OROTATE
     Indication: Product used for unknown indication
     Dosage: UNK, Q3WK (3-2-3)
     Route: 065
  125. DIETARY SUPPLEMENT [Suspect]
     Active Substance: DIETARY SUPPLEMENT
     Indication: Product used for unknown indication
     Dosage: 2-0-1, TID
     Route: 065
  126. PRIORIN [CALCIUM PANTOTHENATE;CYANAMIDE;CYSTINE;PANICUM MILIACEUM;TRIT [Concomitant]
     Indication: Product used for unknown indication
     Dosage: UNK
     Route: 065
  127. XARELTO [Suspect]
     Active Substance: RIVAROXABAN
     Indication: Product used for unknown indication
     Dosage: UNK
     Route: 065
  128. XARELTO [Suspect]
     Active Substance: RIVAROXABAN
     Dosage: UNK, UNKNOWN FREQ
     Route: 065
  129. ASPIRIN CALCIUM [Suspect]
     Active Substance: ASPIRIN CALCIUM
     Indication: Product used for unknown indication
     Dosage: UNK (STRENGTH: 500) BID (1-0-1)
     Route: 065
  130. ASPIRIN CALCIUM [Suspect]
     Active Substance: ASPIRIN CALCIUM
     Indication: Product used for unknown indication
     Dosage: UNK, UNKNOWN FREQ
     Route: 065
  131. ASPIRIN CALCIUM [Suspect]
     Active Substance: ASPIRIN CALCIUM
     Dosage: UNK
     Route: 065
  132. ASPIRIN CALCIUM [Suspect]
     Active Substance: ASPIRIN CALCIUM
     Dosage: UNK, UNKNOWN FREQ
     Route: 065
  133. ASPIRIN CALCIUM [Suspect]
     Active Substance: ASPIRIN CALCIUM
     Dosage: UNK, UNKNOWN FREQ
     Route: 065
  134. ASPIRIN CALCIUM [Suspect]
     Active Substance: ASPIRIN CALCIUM
     Dosage: UNK, UNKNOWN FREQ
     Route: 065
  135. ASPIRIN CALCIUM [Suspect]
     Active Substance: ASPIRIN CALCIUM
     Dosage: UNK, BID
     Route: 065
  136. ASPIRIN CALCIUM [Suspect]
     Active Substance: ASPIRIN CALCIUM
     Dosage: UNK, UNKNOWN FREQ
     Route: 065
  137. ASPIRIN CALCIUM [Suspect]
     Active Substance: ASPIRIN CALCIUM
     Dosage: UNK, UNKNOWN FREQ
     Route: 065
  138. HERBALS [Suspect]
     Active Substance: HERBALS
     Indication: Product used for unknown indication
     Dosage: UNK
     Route: 065
  139. HERBALS [Suspect]
     Active Substance: HERBALS
     Indication: Product used for unknown indication
     Dosage: UNK, UNKNOWN FREQ
     Route: 065
  140. MAGNESIUM ASPARTATE ANHYDROUS [Suspect]
     Active Substance: MAGNESIUM ASPARTATE ANHYDROUS
     Indication: Product used for unknown indication
     Dosage: UNK
     Route: 065
  141. MAGNESIUM ASPARTATE ANHYDROUS [Suspect]
     Active Substance: MAGNESIUM ASPARTATE ANHYDROUS
     Dosage: UNK
     Route: 065
  142. ACETIC ACID\DELTAMETHRIN [Suspect]
     Active Substance: ACETIC ACID\DELTAMETHRIN
     Indication: Product used for unknown indication
     Dosage: UNK
     Route: 065
  143. ACETIC ACID\DELTAMETHRIN [Suspect]
     Active Substance: ACETIC ACID\DELTAMETHRIN
     Indication: Product used for unknown indication
     Dosage: UNK
     Route: 065
  144. ACETIC ACID\DELTAMETHRIN [Suspect]
     Active Substance: ACETIC ACID\DELTAMETHRIN
     Dosage: UNK
     Route: 065
  145. GINKGO [Suspect]
     Active Substance: GINKGO
     Indication: Product used for unknown indication
     Dosage: UNK
     Route: 065
  146. HERBALS\PHENYL SALICYLATE [Suspect]
     Active Substance: HERBALS\PHENYL SALICYLATE
     Indication: Bronchitis
     Dosage: 10 DROPS BID (1-0-1)
     Route: 065
  147. HERBALS\PHENYL SALICYLATE [Suspect]
     Active Substance: HERBALS\PHENYL SALICYLATE
     Indication: Asthma
     Dosage: 10 GTT DROPS, QD
     Route: 065
  148. HERBALS\PHENYL SALICYLATE [Suspect]
     Active Substance: HERBALS\PHENYL SALICYLATE
     Dosage: UNK
     Route: 065
  149. EVOLOCUMAB [Suspect]
     Active Substance: EVOLOCUMAB
     Indication: Product used for unknown indication
     Dosage: UNK, Q3WK
     Route: 065
  150. EVOLOCUMAB [Suspect]
     Active Substance: EVOLOCUMAB
     Dosage: UNK
     Route: 065
  151. EVOLOCUMAB [Suspect]
     Active Substance: EVOLOCUMAB
     Dosage: UNK
     Route: 065
  152. OLMESARTAN MEDOXOMIL [Suspect]
     Active Substance: OLMESARTAN MEDOXOMIL
     Indication: Product used for unknown indication
     Dosage: UNK
     Route: 065
  153. MAGNESIUM ASPARTATE\POTASSIUM ASPARTATE [Suspect]
     Active Substance: MAGNESIUM ASPARTATE\POTASSIUM ASPARTATE
     Indication: Product used for unknown indication
     Dosage: UNK
     Route: 065
  154. MAGNESIUM ASPARTATE\POTASSIUM ASPARTATE [Suspect]
     Active Substance: MAGNESIUM ASPARTATE\POTASSIUM ASPARTATE
     Dosage: UNK, UNKNOWN FREQ
     Route: 065
  155. VITAMIN E [Suspect]
     Active Substance: .ALPHA.-TOCOPHEROL
     Indication: Product used for unknown indication
     Dosage: UNK
     Route: 065
  156. VITAMIN E [Suspect]
     Active Substance: .ALPHA.-TOCOPHEROL
     Dosage: UNK
     Route: 065
  157. VITAMIN D NOS [Suspect]
     Active Substance: VITAMIN D NOS
     Indication: Product used for unknown indication
     Dosage: UNK
     Route: 065
  158. VITAMIN D NOS [Suspect]
     Active Substance: VITAMIN D NOS
     Indication: Product used for unknown indication
  159. DICLOFENAC EPOLAMINE [Suspect]
     Active Substance: DICLOFENAC EPOLAMINE
     Indication: Product used for unknown indication
     Dosage: UNK
     Route: 065
  160. FLUTICASONE PROPIONATE\SALMETEROL XINAFOATE [Suspect]
     Active Substance: FLUTICASONE PROPIONATE\SALMETEROL XINAFOATE
     Indication: Dyspnoea
     Dosage: UNK
     Route: 065
  161. FLUTICASONE PROPIONATE\SALMETEROL XINAFOATE [Suspect]
     Active Substance: FLUTICASONE PROPIONATE\SALMETEROL XINAFOATE
     Indication: Dysphonia
  162. FLUTICASONE PROPIONATE\SALMETEROL XINAFOATE [Suspect]
     Active Substance: FLUTICASONE PROPIONATE\SALMETEROL XINAFOATE
     Indication: Secretion discharge
  163. FLUTICASONE PROPIONATE\SALMETEROL XINAFOATE [Suspect]
     Active Substance: FLUTICASONE PROPIONATE\SALMETEROL XINAFOATE
     Indication: Pneumothorax
  164. FLUTICASONE PROPIONATE\SALMETEROL XINAFOATE [Suspect]
     Active Substance: FLUTICASONE PROPIONATE\SALMETEROL XINAFOATE
     Indication: Nasopharyngitis
  165. FLUTICASONE PROPIONATE\SALMETEROL XINAFOATE [Suspect]
     Active Substance: FLUTICASONE PROPIONATE\SALMETEROL XINAFOATE
     Indication: Cough
  166. ASPIRIN [Suspect]
     Active Substance: ASPIRIN
     Indication: Product used for unknown indication
     Dosage: UNK, UNKNOWN FREQ (STRENGTH 100)
     Route: 065
  167. ALBUTEROL [Suspect]
     Active Substance: ALBUTEROL
     Indication: Nasopharyngitis
     Route: 065
  168. ALBUTEROL [Suspect]
     Active Substance: ALBUTEROL
     Indication: Dyspnoea
  169. ALBUTEROL [Suspect]
     Active Substance: ALBUTEROL
     Indication: Pneumothorax
  170. ALBUTEROL [Suspect]
     Active Substance: ALBUTEROL
     Indication: Dysphonia
  171. CIALIS [Suspect]
     Active Substance: TADALAFIL
     Indication: Product used for unknown indication
     Dosage: UNK, UNKNOWN FREQ
     Route: 065
  172. SALMETEROL [Suspect]
     Active Substance: SALMETEROL
     Indication: Product used for unknown indication
     Dosage: UNK
     Route: 065
  173. VITAMIN E [Suspect]
     Active Substance: .ALPHA.-TOCOPHEROL
     Indication: Product used for unknown indication
     Dosage: UNK, Q2WK
     Route: 065
  174. MOMETASONE [Suspect]
     Active Substance: MOMETASONE
     Indication: Product used for unknown indication
     Dosage: UNK, PRN
     Route: 065
  175. MOMETASONE FUROATE [Suspect]
     Active Substance: MOMETASONE FUROATE
     Indication: Product used for unknown indication
     Dosage: UNK, DAILY 2 PUFFS, BID 1-0-1
     Route: 065
  176. REPATHA [Suspect]
     Active Substance: EVOLOCUMAB
     Indication: Product used for unknown indication
     Dosage: UNK, Q3WK
     Route: 065
  177. FLUTICASONE PROPIONATE\SALMETEROL XINAFOATE [Suspect]
     Active Substance: FLUTICASONE PROPIONATE\SALMETEROL XINAFOATE
     Indication: Nasopharyngitis
     Dosage: UNK, UNKNOWN FREQ
     Route: 065
  178. FLUTICASONE PROPIONATE\SALMETEROL XINAFOATE [Suspect]
     Active Substance: FLUTICASONE PROPIONATE\SALMETEROL XINAFOATE
     Indication: Secretion discharge
     Dosage: UNK, UNKNOWN FREQ
     Route: 065
  179. FLUTICASONE PROPIONATE\SALMETEROL XINAFOATE [Suspect]
     Active Substance: FLUTICASONE PROPIONATE\SALMETEROL XINAFOATE
     Indication: Dysphonia
  180. FLUTICASONE PROPIONATE\SALMETEROL XINAFOATE [Suspect]
     Active Substance: FLUTICASONE PROPIONATE\SALMETEROL XINAFOATE
     Indication: Pneumothorax
  181. FLUTICASONE PROPIONATE\SALMETEROL XINAFOATE [Suspect]
     Active Substance: FLUTICASONE PROPIONATE\SALMETEROL XINAFOATE
     Indication: Pneumothorax
  182. FLUTICASONE PROPIONATE\SALMETEROL XINAFOATE [Suspect]
     Active Substance: FLUTICASONE PROPIONATE\SALMETEROL XINAFOATE
     Indication: Secretion discharge
  183. MAGNESIUM OROTATE [Suspect]
     Active Substance: MAGNESIUM OROTATE
     Indication: Product used for unknown indication
     Dosage: UNK, UNKNOWN FREQ
     Route: 065
  184. MAGNESIUM OROTATE [Suspect]
     Active Substance: MAGNESIUM OROTATE
     Dosage: UNK, UNKNOWN FREQ
     Route: 065
  185. MAGNESIUM OROTATE [Suspect]
     Active Substance: MAGNESIUM OROTATE
     Dosage: UNK, UNKNOWN FREQ (3-2-3)
     Route: 065
  186. MAGNESIUM ASPARTATE\POTASSIUM ASPARTATE [Suspect]
     Active Substance: MAGNESIUM ASPARTATE\POTASSIUM ASPARTATE
     Indication: Product used for unknown indication
     Dosage: UNK, UNKNOWN FREQ
     Route: 065
  187. MAGNESIUM ASPARTATE\POTASSIUM ASPARTATE [Suspect]
     Active Substance: MAGNESIUM ASPARTATE\POTASSIUM ASPARTATE
     Dosage: UNK, UNKNOWN FREQ
     Route: 065
  188. TADALAFIL [Suspect]
     Active Substance: TADALAFIL
     Indication: Product used for unknown indication
     Dosage: UNK, UNKNOWN FREQ
     Route: 065
  189. TADALAFIL [Suspect]
     Active Substance: TADALAFIL
     Dosage: UNK, UNKNOWN FREQ
     Route: 065
  190. GINKGO [Suspect]
     Active Substance: GINKGO
     Indication: Product used for unknown indication
     Route: 065
  191. IBUPROFEN [Suspect]
     Active Substance: IBUPROFEN
     Indication: Product used for unknown indication
     Dosage: UNK, UNKNOWN FREQ
     Route: 065
  192. IBUPROFEN [Suspect]
     Active Substance: IBUPROFEN
     Dosage: UNK, UNKNOWN FREQ
     Route: 065
  193. IBUPROFEN [Suspect]
     Active Substance: IBUPROFEN
     Dosage: UNK, PRN
     Route: 065
  194. SALMETEROL XINAFOATE [Suspect]
     Active Substance: SALMETEROL XINAFOATE
     Indication: Product used for unknown indication
     Dosage: UNK, UNKNOWN FREQ
     Route: 065
     Dates: start: 2018, end: 2018
  195. GINKGO [Suspect]
     Active Substance: GINKGO
     Indication: Product used for unknown indication
     Dosage: UNK, UNKNOWN FREQ
     Route: 065
  196. MAGNESIUM ASPARTATE [Suspect]
     Active Substance: MAGNESIUM ASPARTATE
     Indication: Product used for unknown indication
     Dosage: UNK, STRENGTH: 500, BID
     Route: 065
  197. DICLOFENAC [Suspect]
     Active Substance: DICLOFENAC
     Indication: Product used for unknown indication
     Dosage: UNK, UNKNOWN FREQ
     Route: 065
  198. AMBROXOL HYDROCHLORIDE [Suspect]
     Active Substance: AMBROXOL HYDROCHLORIDE
     Indication: Product used for unknown indication
     Dosage: UNK, UNKNOWN FREQ
     Route: 065
  199. DICLOFENAC EPOLAMINE [Concomitant]
     Active Substance: DICLOFENAC EPOLAMINE
     Indication: Product used for unknown indication
     Dosage: UNK
     Route: 065
  200. FLUTICASONE PROPIONATE\SALMETEROL XINAFOATE [Concomitant]
     Active Substance: FLUTICASONE PROPIONATE\SALMETEROL XINAFOATE
     Indication: Product used for unknown indication
     Dosage: UNK
     Route: 065
  201. DICLOFENAC [Concomitant]
     Active Substance: DICLOFENAC
     Indication: Product used for unknown indication
     Dosage: UNK
     Route: 065
  202. ROSUVASTATIN CALCIUM [Concomitant]
     Active Substance: ROSUVASTATIN CALCIUM
     Indication: Product used for unknown indication
     Dosage: UNK
     Route: 065
  203. SALMETEROL XINAFOATE [Concomitant]
     Active Substance: SALMETEROL XINAFOATE
     Indication: Product used for unknown indication
     Dosage: UNK
     Route: 065
  204. MAGNESIUM OROTATE [Concomitant]
     Active Substance: MAGNESIUM OROTATE
     Indication: Product used for unknown indication
     Dosage: UNK
     Route: 065
  205. MAGNESIUM OROTATE [Concomitant]
     Active Substance: MAGNESIUM OROTATE
     Dosage: UNK
     Route: 065
  206. TADALAFIL [Concomitant]
     Active Substance: TADALAFIL
     Indication: Product used for unknown indication
     Dosage: UNK
     Route: 065
  207. CALCIUM [Concomitant]
     Active Substance: CALCIUM
     Indication: Product used for unknown indication
     Dosage: UNK
     Route: 065
  208. REPATHA [Concomitant]
     Active Substance: EVOLOCUMAB
     Indication: Product used for unknown indication
     Dosage: UNK
     Route: 065
  209. CRESTOR [Concomitant]
     Active Substance: ROSUVASTATIN CALCIUM
     Indication: Product used for unknown indication
     Dosage: UNK
     Route: 065
  210. XARELTO [Concomitant]
     Active Substance: RIVAROXABAN
     Indication: Product used for unknown indication
     Dosage: UNK
     Route: 065
  211. BISOPROLOL [Concomitant]
     Active Substance: BISOPROLOL\BISOPROLOL FUMARATE
     Indication: Product used for unknown indication
     Dosage: UNK
     Route: 065
     Dates: start: 20201210
  212. CLOPIDOGREL [Concomitant]
     Active Substance: CLOPIDOGREL BISULFATE
     Indication: Product used for unknown indication
     Dosage: UNK
     Route: 065
     Dates: start: 20201210
  213. GINKGO [Concomitant]
     Active Substance: GINKGO
     Indication: Product used for unknown indication
     Dosage: UNK
     Route: 065
  214. ALBUTEROL [Concomitant]
     Active Substance: ALBUTEROL
     Indication: Product used for unknown indication
     Dosage: UNK
     Route: 065
  215. IBUPROFEN [Concomitant]
     Active Substance: IBUPROFEN
     Indication: Product used for unknown indication
     Dosage: UNK
     Route: 065
  216. MOMETASONE FUROATE [Concomitant]
     Active Substance: MOMETASONE FUROATE
     Indication: Product used for unknown indication
     Dosage: UNK
     Route: 065
  217. BIOTIN [Concomitant]
     Active Substance: BIOTIN
     Indication: Product used for unknown indication
     Dosage: UNK
     Route: 065
  218. PRALUENT [Concomitant]
     Active Substance: ALIROCUMAB
     Indication: Product used for unknown indication
     Dosage: UNK
     Route: 065
  219. CIALIS [Concomitant]
     Active Substance: TADALAFIL
     Indication: Product used for unknown indication
     Dosage: UNK
     Route: 065
  220. CALCIUM CARBONATE [Concomitant]
     Active Substance: CALCIUM CARBONATE
     Indication: Product used for unknown indication
     Dosage: UNK
     Route: 065
  221. PROPIONATE [Concomitant]
     Indication: Product used for unknown indication
     Dosage: UNK
     Route: 065
  222. PREDNISOLONE [Concomitant]
     Active Substance: PREDNISOLONE
     Indication: Product used for unknown indication
     Dosage: UNKNOWN
     Route: 065
  223. DICLOFENAC [Concomitant]
     Active Substance: DICLOFENAC
     Indication: Product used for unknown indication
     Dosage: UNK
     Route: 065
  224. ERGOCALCIFEROL [Concomitant]
     Active Substance: ERGOCALCIFEROL
     Indication: Product used for unknown indication
     Dosage: UNK
     Route: 065
  225. DIETARY SUPPLEMENT [Concomitant]
     Active Substance: DIETARY SUPPLEMENT
     Indication: Product used for unknown indication
     Dosage: UNK
     Route: 065
  226. MAGNESIUM ASPARTATE [Concomitant]
     Active Substance: MAGNESIUM ASPARTATE
     Indication: Product used for unknown indication
     Dosage: UNK
     Route: 065
  227. GINKGO [Concomitant]
     Active Substance: GINKGO
     Indication: Product used for unknown indication
     Dosage: UNK
     Route: 065
  228. OLMESARTAN MEDOXOMIL [Concomitant]
     Active Substance: OLMESARTAN MEDOXOMIL
     Indication: Product used for unknown indication
     Dosage: UNK
     Route: 065
  229. VITAMIN D NOS [Concomitant]
     Active Substance: VITAMIN D NOS
     Indication: Product used for unknown indication
     Dosage: UNK
     Route: 065
  230. CALCIUM CARBONATE [Concomitant]
     Active Substance: CALCIUM CARBONATE
     Indication: Product used for unknown indication
     Dosage: UNK
     Route: 065
  231. EVOLOCUMAB [Concomitant]
     Active Substance: EVOLOCUMAB
     Indication: Product used for unknown indication
     Dosage: UNK
     Route: 065
  232. PRIORIN [CALCIUM PANTOTHENATE;CYANAMIDE;CYSTINE;PANICUM MILIACEUM;TRIT [Concomitant]
     Indication: Product used for unknown indication
     Dosage: UNK
     Route: 065
  233. OLMESARTAN MEDOXOMIL [Concomitant]
     Active Substance: OLMESARTAN MEDOXOMIL
     Indication: Product used for unknown indication
     Route: 065
  234. HERBALS\PHENYL SALICYLATE [Concomitant]
     Active Substance: HERBALS\PHENYL SALICYLATE
     Indication: Product used for unknown indication
     Route: 065

REACTIONS (22)
  - Atrial fibrillation [Recovered/Resolved]
  - Dysphonia [Unknown]
  - Muscle spasms [Unknown]
  - Wheezing [Unknown]
  - Myoglobin blood increased [Unknown]
  - Brain natriuretic peptide increased [Unknown]
  - Nasopharyngitis [Unknown]
  - Plantar fasciitis [Unknown]
  - Coronary artery disease [Unknown]
  - Fractional exhaled nitric oxide increased [Recovered/Resolved]
  - Obstructive airways disorder [Unknown]
  - Sensation of foreign body [Unknown]
  - Eosinophilia [Unknown]
  - Obstructive sleep apnoea syndrome [Unknown]
  - Chest discomfort [Unknown]
  - Exostosis [Unknown]
  - Cough [Not Recovered/Not Resolved]
  - Dyspnoea [Unknown]
  - Secretion discharge [Unknown]
  - Dyspnoea exertional [Unknown]
  - Pneumothorax [Not Recovered/Not Resolved]
  - Cardiac disorder [Unknown]

NARRATIVE: CASE EVENT DATE: 20180101
